FAERS Safety Report 4466779-8 (Version None)
Quarter: 2004Q3

REPORT INFORMATION
  Report Type: 
  Country: None (occurrence: None)
  Receive Date: 20040930
  Receipt Date: 20040921
  Transmission Date: 20050211
  Serious: Yes (Other)
  Sender: FDA-Public Use
  Company Number: 2004-02-0972

PATIENT
  Age: 29 Year
  Sex: Female
  Weight: 54.8852 kg

DRUGS (3)
  1. EULEXIN [Suspect]
     Indication: HIRSUTISM
     Dosage: 250 MG BID ORAL
     Route: 048
     Dates: start: 20040122, end: 20040129
  2. EULEXIN [Suspect]
     Indication: POLYCYSTIC OVARIES
     Dosage: 250 MG BID ORAL
     Route: 048
     Dates: start: 20040122, end: 20040129
  3. MIRCETTE (DESOGESTROL/ETHINYL ESTRADIOL) [Concomitant]

REACTIONS (2)
  - COLITIS [None]
  - RECTAL HAEMORRHAGE [None]
